FAERS Safety Report 6715386-2 (Version None)
Quarter: 2010Q2

REPORT INFORMATION
  Report Type: 
  Country: None (occurrence: None)
  Receive Date: 20100507
  Receipt Date: 20100507
  Transmission Date: 20101027
  Serious: Yes (Other)
  Sender: FDA-Public Use
  Company Number: None

PATIENT
  Age: 3 Year
  Sex: Male
  Weight: 15.8759 kg

DRUGS (4)
  1. CHILDREN'S MOTRIN [Suspect]
     Indication: EAR INFECTION
     Dosage: 1 TSP EVERY 6 HOURS PO
     Route: 048
     Dates: start: 20100115, end: 20100215
  2. CHILDREN'S MOTRIN [Suspect]
     Indication: PYREXIA
     Dosage: 1 TSP EVERY 6 HOURS PO
     Route: 048
     Dates: start: 20100115, end: 20100215
  3. CHILDREN'S MOTRIN [Suspect]
     Indication: FEELING COLD
  4. CHILDREN'S MOTRIN [Suspect]
     Indication: PYREXIA

REACTIONS (9)
  - ABASIA [None]
  - ARTHRALGIA [None]
  - CRYING [None]
  - ERYTHEMA MULTIFORME [None]
  - EYE SWELLING [None]
  - NO THERAPEUTIC RESPONSE [None]
  - OEDEMA PERIPHERAL [None]
  - PRODUCT QUALITY ISSUE [None]
  - URTICARIA [None]
